FAERS Safety Report 4435287-2 (Version None)
Quarter: 2004Q3

REPORT INFORMATION
  Report Type: 
  Country: None (occurrence: None)
  Receive Date: 20040827
  Receipt Date: 20040827
  Transmission Date: 20050211
  Serious: No
  Sender: FDA-Public Use
  Company Number: None

PATIENT
  Age: 72 Year
  Sex: Male

DRUGS (3)
  1. CARBOPLATIN [Suspect]
  2. GEMZAR [Suspect]
  3. ZILEUTON [Suspect]

REACTIONS (6)
  - ANAEMIA [None]
  - DYSPNOEA [None]
  - FAECES DISCOLOURED [None]
  - FATIGUE [None]
  - PLATELET COUNT DECREASED [None]
  - WHITE BLOOD CELL COUNT DECREASED [None]
